FAERS Safety Report 16400415 (Version 1)
Quarter: 2019Q2

REPORT INFORMATION
  Report Type: Report from Study
  Country: US (occurrence: US)
  Receive Date: 20190606
  Receipt Date: 20190606
  Transmission Date: 20190711
  Serious: Yes (Death, Hospitalization)
  Sender: FDA-Public Use
  Company Number: US-ADAMAS PHARMA, LLC-2019ADA00930

PATIENT
  Age: 70 Year
  Sex: Male
  Weight: 97.51 kg

DRUGS (19)
  1. GOCOVRI [Suspect]
     Active Substance: AMANTADINE
     Indication: DYSKINESIA
     Dosage: 137 MG, 1X/DAY AT BEDTIME
     Route: 048
     Dates: start: 20180516, end: 20180522
  2. ATORVASTATIN [Concomitant]
     Active Substance: ATORVASTATIN
  3. BUPROPION. [Concomitant]
     Active Substance: BUPROPION
  4. GABAPENTIN. [Concomitant]
     Active Substance: GABAPENTIN
  5. RIVASTIGMINE. [Concomitant]
     Active Substance: RIVASTIGMINE
  6. GOCOVRI [Suspect]
     Active Substance: AMANTADINE
     Dosage: 274 MG, 1X/DAY AT BEDTIME
     Route: 048
     Dates: start: 20180523
  7. ZOLPIDEM [Concomitant]
     Active Substance: ZOLPIDEM\ZOLPIDEM TARTRATE
  8. TRIAMCINOLONE [Concomitant]
     Active Substance: TRIAMCINOLONE
  9. BENZONATATE. [Concomitant]
     Active Substance: BENZONATATE
  10. NITROGLYCERIN. [Concomitant]
     Active Substance: NITROGLYCERIN
  11. NORTRIPTYLINE [Concomitant]
     Active Substance: NORTRIPTYLINE
  12. PAROXETINE. [Concomitant]
     Active Substance: PAROXETINE
  13. GOCOVRI [Suspect]
     Active Substance: AMANTADINE
     Dosage: 274 MG, 1X/DAY AT BEDTIME
     Route: 048
  14. GOCOVRI [Suspect]
     Active Substance: AMANTADINE
     Dosage: 274 MG, 1X/DAY AT BEDTIME
     Route: 048
     Dates: end: 20190520
  15. BRILINTA [Concomitant]
     Active Substance: TICAGRELOR
  16. CARVEDILOL. [Concomitant]
     Active Substance: CARVEDILOL
  17. CARBIDOPA/LEVODOPA [Concomitant]
     Active Substance: CARBIDOPA\LEVODOPA
  18. FLUOXETINE [Concomitant]
     Active Substance: FLUOXETINE HYDROCHLORIDE
  19. LYRICA [Concomitant]
     Active Substance: PREGABALIN

REACTIONS (3)
  - Fall [Not Recovered/Not Resolved]
  - Pneumonia aspiration [Fatal]
  - Respiratory failure [Fatal]

NARRATIVE: CASE EVENT DATE: 201904
